FAERS Safety Report 20731421 (Version 5)
Quarter: 2022Q3

REPORT INFORMATION
  Report Type: Spontaneous
  Country: US (occurrence: US)
  Receive Date: 20220420
  Receipt Date: 20220722
  Transmission Date: 20221027
  Serious: No
  Sender: FDA-Public Use
  Company Number: US-SA-SAC20220415000479

PATIENT
  Age: 52 Year
  Sex: Female

DRUGS (7)
  1. DUPIXENT [Suspect]
     Active Substance: DUPILUMAB
     Indication: Dermatitis atopic
     Dosage: 300 MG, QOW
     Route: 058
     Dates: start: 20220211
  2. HYDROXYZINE [Concomitant]
     Active Substance: HYDROXYZINE HYDROCHLORIDE
  3. BENADRYL [Concomitant]
     Active Substance: DIPHENHYDRAMINE HYDROCHLORIDE
  4. TYLENOL [Concomitant]
     Active Substance: ACETAMINOPHEN
  5. IBUPROFEN [Concomitant]
     Active Substance: IBUPROFEN
  6. ALBUTEROL [Concomitant]
     Active Substance: ALBUTEROL
  7. DOXYCYCLINE [Concomitant]
     Active Substance: DOXYCYCLINE

REACTIONS (9)
  - Rosacea [Not Recovered/Not Resolved]
  - Erythema [Unknown]
  - Headache [Unknown]
  - Fatigue [Unknown]
  - Skin mass [Unknown]
  - Acne [Not Recovered/Not Resolved]
  - Foreign body sensation in eyes [Unknown]
  - Rash [Not Recovered/Not Resolved]
  - Condition aggravated [Not Recovered/Not Resolved]

NARRATIVE: CASE EVENT DATE: 20220325
